FAERS Safety Report 12627276 (Version 1)
Quarter: 2016Q3

REPORT INFORMATION
  Report Type: Report from Study
  Country: PL (occurrence: PL)
  Receive Date: 20160805
  Receipt Date: 20160805
  Transmission Date: 20161109
  Serious: Yes (Death, Hospitalization, Other)
  Sender: FDA-Public Use
  Company Number: PL-B.I. PHARMACEUTICALS,INC./RIDGEFIELD-2016-BI-50240BI

PATIENT
  Age: 76 Year
  Sex: Male

DRUGS (1)
  1. PRADAXA [Suspect]
     Active Substance: DABIGATRAN ETEXILATE MESYLATE
     Indication: ATRIAL FIBRILLATION
     Dosage: 220 MG
     Route: 065

REACTIONS (6)
  - Cardiogenic shock [Unknown]
  - Cardiac output decreased [Unknown]
  - Hypotension [Unknown]
  - Aortic aneurysm [Unknown]
  - Aortic dissection [Unknown]
  - Cardiac failure [Fatal]

NARRATIVE: CASE EVENT DATE: 201605
